FAERS Safety Report 17969720 (Version 1)
Quarter: 2020Q3

REPORT INFORMATION
  Report Type: Spontaneous
  Country: CA (occurrence: CA)
  Receive Date: 20200701
  Receipt Date: 20200701
  Transmission Date: 20201103
  Serious: Yes (Hospitalization, Other)
  Sender: FDA-Public Use
  Company Number: CA-HRARD-201900857

PATIENT
  Sex: Female

DRUGS (5)
  1. LYSODREN [Suspect]
     Active Substance: MITOTANE
     Indication: ADRENOCORTICAL CARCINOMA
     Dosage: 04 TABLETS TWICE A DAY (04 IN THE MORNING AND 04 IN THE EVENING)
     Route: 048
     Dates: start: 20190614, end: 201909
  2. LYSODREN [Suspect]
     Active Substance: MITOTANE
     Indication: ADRENOCORTICAL CARCINOMA
     Dosage: 03 TABLETS TWICE A DAY
     Route: 048
     Dates: start: 201909
  3. LYSODREN [Suspect]
     Active Substance: MITOTANE
     Indication: ADRENOCORTICAL CARCINOMA
     Route: 048
     Dates: start: 202006
  4. LYSODREN [Suspect]
     Active Substance: MITOTANE
     Indication: ADRENOCORTICAL CARCINOMA
     Dosage: INITIAL DOSE OF 03 TABLETS PER DAY WITH AN INCREASE OF 01 TABLET EVERY FOUR DAYS.
     Route: 048
     Dates: start: 20190513, end: 201906
  5. HYDROCORTISONE. [Concomitant]
     Active Substance: HYDROCORTISONE
     Indication: PRODUCT USED FOR UNKNOWN INDICATION
     Dosage: 02 TABLETS OF 10 MG 03 TIMES A DAY
     Route: 048

REACTIONS (4)
  - Dizziness [Unknown]
  - Adrenocortical insufficiency acute [Unknown]
  - Cystitis [Unknown]
  - Fatigue [Not Recovered/Not Resolved]

NARRATIVE: CASE EVENT DATE: 2019
